FAERS Safety Report 9345755 (Version 2)
Quarter: 2013Q3

REPORT INFORMATION
  Report Type: Spontaneous
  Country: US (occurrence: US)
  Receive Date: 20130613
  Receipt Date: 20130708
  Transmission Date: 20140515
  Serious: No
  Sender: FDA-Public Use
  Company Number: US-PFIZER INC-2013174172

PATIENT
  Age: 56 Year
  Sex: Female
  Weight: 70.3 kg

DRUGS (15)
  1. XALKORI [Suspect]
     Indication: LUNG NEOPLASM MALIGNANT
     Dosage: 250 MG, 2X/DAY
     Route: 048
  2. XALKORI [Suspect]
     Dosage: 250 MG, 2X/DAY
     Route: 048
     Dates: start: 20130612
  3. PRAVASTATIN [Concomitant]
     Dosage: 40 MG, UNK
  4. OMEPRAZOLE [Concomitant]
     Dosage: 40 MG, UNK
  5. SINGULAIR [Concomitant]
     Dosage: 10 MG, UNK
  6. DIOVAN [Concomitant]
     Dosage: 40 MG, UNK
  7. DILTIAZEM [Concomitant]
     Dosage: 120 MG / 24
  8. ASPIRIN [Concomitant]
     Dosage: 81 MG, UNK
  9. ZYRTEC [Concomitant]
     Dosage: 5 MG, UNK
  10. SYMBICORT [Concomitant]
     Dosage: 80-4.5 UNK
  11. CALCIUM [Concomitant]
     Dosage: UNK
  12. FOLIC ACID [Concomitant]
     Dosage: UNK
  13. XOPENEX [Concomitant]
     Dosage: 0.31 MG, UNK
  14. VENTOLIN [Concomitant]
     Dosage: UNK
  15. STOOL SOFTENER [Concomitant]
     Dosage: 100 MG, UNK

REACTIONS (1)
  - Constipation [Recovered/Resolved]
